FAERS Safety Report 10087289 (Version 2)
Quarter: 2014Q2

REPORT INFORMATION
  Report Type: Spontaneous
  Country: US (occurrence: US)
  Receive Date: 20140418
  Receipt Date: 20140418
  Transmission Date: 20141212
  Serious: Yes (Other)
  Sender: FDA-Public Use
  Company Number: US-RB-063100-14

PATIENT
  Age: 21 Year
  Sex: Female
  Weight: 54 kg

DRUGS (9)
  1. SUBOXONE TABLET [Suspect]
     Indication: PRODUCT USED FOR UNKNOWN INDICATION
     Route: 060
     Dates: start: 200804, end: 201208
  2. SUBOXONE TABLET [Suspect]
     Indication: DRUG DEPENDENCE
     Dosage: PATERNAL DOSING DETAILS UNKNOWN
     Route: 065
     Dates: start: 200805
  3. SUBUTEX [Suspect]
     Indication: DRUG DEPENDENCE
     Route: 060
     Dates: start: 200805, end: 200901
  4. OPIOIDS [Suspect]
     Indication: PRODUCT USED FOR UNKNOWN INDICATION
     Dosage: DOSING DETAILS UNKNOWN
     Route: 065
     Dates: start: 2001
  5. NICOTINE [Concomitant]
     Indication: PRODUCT USED FOR UNKNOWN INDICATION
     Dosage: 10 CIGARETTES DAILY
     Route: 055
     Dates: start: 2001
  6. PRENATAL VITAMIN [Concomitant]
     Indication: PREGNANCY
     Dosage: 1 DAILY, DOSING DETAILS UNKNOWN
     Route: 065
     Dates: start: 200804, end: 200903
  7. IRON SUPPLEMENT [Concomitant]
     Indication: ANAEMIA OF PREGNANCY
     Dosage: 1 TABLET DAILY
     Route: 065
  8. TYLENOL [Concomitant]
     Indication: BACK PAIN
     Dosage: TAKES 2 TABLETS DAILY
     Route: 065
     Dates: start: 200809, end: 200902
  9. TYLENOL [Concomitant]
     Indication: BACK PAIN
     Dosage: TAKES 2 TABLETS DAILY
     Route: 065
     Dates: start: 200809, end: 200902

REACTIONS (11)
  - Maternal exposure during pregnancy [Recovered/Resolved]
  - Exposure via father [Recovered/Resolved]
  - Gestational hypertension [Recovered/Resolved]
  - Drug abuse [Recovered/Resolved]
  - Constipation [Unknown]
  - Headache [Unknown]
  - Back pain [Unknown]
  - Anaemia of pregnancy [Recovered/Resolved]
  - Tooth disorder [Unknown]
  - Premature delivery [Recovered/Resolved]
  - Cardiac murmur [Unknown]
